FAERS Safety Report 15455528 (Version 2)
Quarter: 2018Q4

REPORT INFORMATION
  Report Type: Spontaneous
  Country: JP (occurrence: JP)
  Receive Date: 20181002
  Receipt Date: 20181019
  Transmission Date: 20190204
  Serious: Yes (Hospitalization, Other)
  Sender: FDA-Public Use
  Company Number: JP-GLAXOSMITHKLINE-JP2018JPN174252

PATIENT

DRUGS (2)
  1. REFLEX [Concomitant]
     Active Substance: MIRTAZAPINE
     Dosage: UNK
  2. LAMICTAL [Suspect]
     Active Substance: LAMOTRIGINE
     Dosage: 25 MG, 1D
     Route: 048

REACTIONS (3)
  - Pneumonia aspiration [Unknown]
  - Meningitis [Unknown]
  - Prescribed underdose [Unknown]
